FAERS Safety Report 8003286-X (Version None)
Quarter: 2011Q4

REPORT INFORMATION
  Report Type: 
  Country: None (occurrence: None)
  Receive Date: 20111222
  Receipt Date: 20111219
  Transmission Date: 20120403
  Serious: Yes (Other)
  Sender: FDA-Public Use
  Company Number: PHHY2010CA81858

PATIENT
  Sex: Female

DRUGS (1)
  1. ZOLEDRONOC ACID [Suspect]
     Indication: OSTEOPOROSIS
     Dosage: UNK
     Route: 042
     Dates: start: 20091211

REACTIONS (5)
  - SCOLIOSIS [None]
  - COMPRESSION FRACTURE [None]
  - RESTRICTIVE PULMONARY DISEASE [None]
  - HIP FRACTURE [None]
  - OSTEONECROSIS [None]
